FAERS Safety Report 8170513-8 (Version None)
Quarter: 2012Q1

REPORT INFORMATION
  Report Type: 
  Country: None (occurrence: None)
  Receive Date: 20120104
  Receipt Date: 20111115
  Transmission Date: 20120608
  Serious: No
  Sender: FDA-Public Use
  Company Number: 2011HGS-002486

PATIENT
  Age: 59 Year
  Sex: Female
  Weight: 97.5234 kg

DRUGS (16)
  1. PLAQUENIL (HYDROXYCHLOROQUINE SULFATE)(HYDROXYCHLOROQUINE SULFATE) [Concomitant]
  2. LISINOPRIL [Concomitant]
  3. BENLYSTA [Suspect]
     Indication: SYSTEMIC LUPUS ERYTHEMATOSUS
     Dosage: INTRAVENOUS DRIP
     Route: 041
     Dates: start: 20110714
  4. PREDNISONE [Concomitant]
  5. CRESTOR [Concomitant]
  6. VITAMIN D(ERGOCALCIFEROL)(ERGOCALCIFEROL) [Concomitant]
  7. OSCAL D(CALCIUM CARBONATE)(CALCIUM CARBONATE) [Concomitant]
  8. VIVELLE(ESTRADIOL)(ESTRADIOL) [Concomitant]
  9. NAPROSYN(NAPROXEN)(NAPROXEN [Concomitant]
  10. NEXIUM [Concomitant]
  11. METOPROLOL SUCCINATE [Concomitant]
  12. LASIX(LASIX/SCH/)(FUROSEMIDE, FUROSEMIDE SODIUM) [Concomitant]
  13. PAROXETINE(PAROXETINE)(PAROXETINE) [Concomitant]
  14. LEVOTHYROXINE SODIUM [Concomitant]
  15. KLOR-CON(POTASSIUM CHLORIDE)(POTASSIUM CHLORIDE) [Concomitant]
  16. IMURAN [Concomitant]

REACTIONS (3)
  - RASH [None]
  - FATIGUE [None]
  - ARTHRALGIA [None]
